FAERS Safety Report 4695501-5 (Version None)
Quarter: 2005Q2

REPORT INFORMATION
  Report Type: 
  Country: None (occurrence: None)
  Receive Date: 20050621
  Receipt Date: 20020807
  Transmission Date: 20051028
  Serious: Yes (Hospitalization)
  Sender: FDA-Public Use
  Company Number: JP-SOLVAY-00302002031

PATIENT
  Age: 6663 Day
  Sex: Female
  Weight: 36.9 kg

DRUGS (4)
  1. CREON [Suspect]
     Indication: CYSTIC FIBROSIS PANCREATIC
     Dosage: DAILY DOSE: 6 G. FREQUENCY:UNKNOWN
     Route: 048
     Dates: start: 20001114, end: 20040316
  2. PANVITAN [Concomitant]
     Indication: HYPOVITAMINOSIS
     Dosage: DAILY DOSE: 3 G. FREQUENCY:UNKNOWN
     Route: 048
     Dates: start: 20001114
  3. CLARITHROMYCIN [Concomitant]
     Indication: BRONCHITIS CHRONIC
     Dosage: DAILY DOSE: 100 MG. FREQUENCY:UNKNOWN
     Route: 048
     Dates: start: 20001114
  4. KAYWAN [Concomitant]
     Indication: VITAMIN K DEFICIENCY
     Dosage: DAILY DOSE: 5 MG. FREQUENCY:UNKNOWN
     Route: 048
     Dates: start: 20011114

REACTIONS (1)
  - HERPES VIRUS INFECTION [None]
